FAERS Safety Report 9582554 (Version 1)
Quarter: 2013Q4

REPORT INFORMATION
  Report Type: Spontaneous
  Country: US (occurrence: US)
  Receive Date: 20131002
  Receipt Date: 20131002
  Transmission Date: 20140711
  Serious: No
  Sender: FDA-Public Use
  Company Number: US-AMGEN-USASP2013041143

PATIENT
  Age: 29 Year
  Sex: Female
  Weight: 65.76 kg

DRUGS (7)
  1. ENBREL [Suspect]
     Indication: PRODUCT USED FOR UNKNOWN INDICATION
     Dosage: 50 MG, 2 TIMES/WK
     Route: 058
  2. HUMIRA [Concomitant]
     Dosage: 40 MG/0.8, UNK
  3. GILDESS FE [Concomitant]
     Dosage: 1.5/30
  4. BIOTIN [Concomitant]
     Dosage: 5000 UNK, UNK
  5. CALCIUM [Concomitant]
     Dosage: 500 UNK, UNK
  6. OMEGA-3                            /01866101/ [Concomitant]
     Dosage: UNK
  7. VITAMIN D                          /00107901/ [Concomitant]
     Dosage: 1000 UNIT, UNK

REACTIONS (1)
  - Therapeutic response decreased [Unknown]
